FAERS Safety Report 16016230 (Version 2)
Quarter: 2019Q1

REPORT INFORMATION
  Report Type: Spontaneous
  Country: FR (occurrence: FR)
  Receive Date: 20190228
  Receipt Date: 20190306
  Transmission Date: 20190418
  Serious: Yes (Life-Threatening, Hospitalization)
  Sender: FDA-Public Use
  Company Number: FR-BIOGEN-2012BI004437

PATIENT
  Age: 46 Year
  Sex: Male

DRUGS (1)
  1. TYSABRI [Suspect]
     Active Substance: NATALIZUMAB
     Indication: MULTIPLE SCLEROSIS
     Route: 050
     Dates: start: 20080716, end: 20120113

REACTIONS (4)
  - Multiple sclerosis relapse [Recovered/Resolved]
  - Secondary progressive multiple sclerosis [Not Recovered/Not Resolved]
  - Progressive multifocal leukoencephalopathy [Not Recovered/Not Resolved]
  - Immune reconstitution inflammatory syndrome [Not Recovered/Not Resolved]

NARRATIVE: CASE EVENT DATE: 20120121
